FAERS Safety Report 9939916 (Version 1)
Quarter: 2014Q1

REPORT INFORMATION
  Report Type: Report from Study
  Country: US (occurrence: US)
  Receive Date: 20140303
  Receipt Date: 20140303
  Transmission Date: 20141002
  Serious: No
  Sender: FDA-Public Use
  Company Number: US-ABBVIE-13P-163-1034505-00

PATIENT
  Sex: Female
  Weight: 74 kg

DRUGS (9)
  1. HUMIRA [Suspect]
     Indication: RHEUMATOID ARTHRITIS
     Dates: start: 2008, end: 2009
  2. LANTUS [Concomitant]
     Indication: DIABETES MELLITUS
  3. HUMALOG [Concomitant]
     Indication: DIABETES MELLITUS
  4. METFORMIN [Concomitant]
     Indication: DIABETES MELLITUS
  5. METHOTREXATE [Concomitant]
     Indication: RHEUMATOID ARTHRITIS
  6. LISINOPRIL [Concomitant]
     Indication: PRODUCT USED FOR UNKNOWN INDICATION
  7. CRESTOR [Concomitant]
     Indication: PRODUCT USED FOR UNKNOWN INDICATION
  8. PREDNISONE [Concomitant]
     Indication: RHEUMATOID ARTHRITIS
  9. FOLIC ACID [Concomitant]
     Indication: PRODUCT USED FOR UNKNOWN INDICATION

REACTIONS (2)
  - False positive tuberculosis test [Recovered/Resolved with Sequelae]
  - Drug ineffective [Not Recovered/Not Resolved]
